FAERS Safety Report 12558062 (Version 1)
Quarter: 2016Q3

REPORT INFORMATION
  Report Type: Spontaneous
  Country: US (occurrence: US)
  Receive Date: 20160714
  Receipt Date: 20160714
  Transmission Date: 20161109
  Serious: No
  Sender: FDA-Public Use
  Company Number: US-TOLMAR INC.-1055070

PATIENT
  Age: 85 Year
  Sex: Female
  Weight: 45.46 kg

DRUGS (1)
  1. KETOCONAZOLE SHAMPOO, 2% [Suspect]
     Active Substance: KETOCONAZOLE
     Indication: SEBORRHOEA
     Route: 061
     Dates: start: 2016, end: 2016

REACTIONS (3)
  - Application site erythema [Recovering/Resolving]
  - Application site exfoliation [Recovering/Resolving]
  - Burning sensation [Recovering/Resolving]

NARRATIVE: CASE EVENT DATE: 2016
